FAERS Safety Report 8402195-1 (Version None)
Quarter: 2012Q2

REPORT INFORMATION
  Report Type: 
  Country: None (occurrence: None)
  Receive Date: 20120601
  Receipt Date: 20120529
  Transmission Date: 20120825
  Serious: Yes (Death)
  Sender: FDA-Public Use
  Company Number: GB-COVIDIEN/TYCO HEALTHCARE/MALLINCKRODT-T201201921

PATIENT
  Sex: Male

DRUGS (1)
  1. OPTIRAY 160 [Suspect]
     Indication: COMPUTERISED TOMOGRAM
     Dosage: 100 ML, SINGLE
     Route: 042
     Dates: start: 20120522, end: 20120522

REACTIONS (7)
  - MALAISE [None]
  - AORTIC VALVE DISEASE [None]
  - COUGH [None]
  - LEFT VENTRICULAR HYPERTROPHY [None]
  - RETCHING [None]
  - CARDIAC ARREST [None]
  - DYSPNOEA [None]
